FAERS Safety Report 17422548 (Version 1)
Quarter: 2020Q1

REPORT INFORMATION
  Report Type: Spontaneous
  Country: US (occurrence: US)
  Receive Date: 20200215
  Receipt Date: 20200215
  Transmission Date: 20200409
  Serious: Yes (Other)
  Sender: FDA-Public Use
  Company Number: US-ROCHE-2547484

PATIENT
  Age: 69 Year
  Sex: Female
  Weight: 52 kg

DRUGS (20)
  1. CYTARABINE. [Concomitant]
     Active Substance: CYTARABINE
     Indication: DIFFUSE LARGE B-CELL LYMPHOMA RECURRENT
     Dosage: 2 CYCLES, ONGOING: NO
     Route: 065
     Dates: start: 201612, end: 201701
  2. ALLOPURINOL. [Concomitant]
     Active Substance: ALLOPURINOL
     Indication: TUMOUR LYSIS SYNDROME
  3. BENDAMUSTINE [Concomitant]
     Active Substance: BENDAMUSTINE
     Indication: ABDOMINAL MASS
     Route: 065
     Dates: start: 201708
  4. CYCLOPHOSPHAMIDE. [Concomitant]
     Active Substance: CYCLOPHOSPHAMIDE
     Indication: DIFFUSE LARGE B-CELL LYMPHOMA
     Route: 065
     Dates: start: 201512, end: 201604
  5. CISPLATIN. [Concomitant]
     Active Substance: CISPLATIN
     Route: 065
     Dates: start: 20190424
  6. RITUXAN [Suspect]
     Active Substance: RITUXIMAB
     Indication: ABDOMINAL MASS
     Dosage: ONGING: NO
     Route: 065
     Dates: start: 201512
  7. DEXAMETHASONE. [Concomitant]
     Active Substance: DEXAMETHASONE
     Indication: MALIGNANT ASCITES
     Route: 065
     Dates: start: 20200201
  8. ACYCLOVIR [ACICLOVIR] [Concomitant]
     Active Substance: ACYCLOVIR
     Indication: HERPES SIMPLEX
  9. GEMCITABINE. [Concomitant]
     Active Substance: GEMCITABINE
     Dosage: NUMBER OF CYCLES ADMINISTERED UNKNOWN ;ONGOING: NO
     Route: 065
     Dates: start: 201702
  10. ATOVAQUONE. [Concomitant]
     Active Substance: ATOVAQUONE
     Indication: PNEUMOCYSTIS JIROVECII PNEUMONIA
  11. RITUXAN [Suspect]
     Active Substance: RITUXIMAB
     Indication: MALIGNANT ASCITES
     Dosage: ONGING: YES
     Route: 065
     Dates: start: 20170801
  12. COPANLISIB. [Concomitant]
     Active Substance: COPANLISIB
     Indication: DISEASE PROGRESSION
     Route: 065
     Dates: start: 201803, end: 201904
  13. FLUDARABINE [Concomitant]
     Active Substance: FLUDARABINE PHOSPHATE
     Route: 065
     Dates: start: 201904
  14. VINCRISTINE [Concomitant]
     Active Substance: VINCRISTINE
     Indication: DIFFUSE LARGE B-CELL LYMPHOMA
     Route: 065
     Dates: start: 201512, end: 201604
  15. ALLOPURINOL. [Concomitant]
     Active Substance: ALLOPURINOL
     Indication: CHRONIC KIDNEY DISEASE
     Dosage: DOSAGE INCREASED PRIOR TO START OF RITUXAN ;ONGOING: YES
     Route: 065
     Dates: start: 202002
  16. BENDAMUSTINE [Concomitant]
     Active Substance: BENDAMUSTINE
     Route: 065
     Dates: start: 201710
  17. DOXORUBICIN HYDROCHLORIDE. [Concomitant]
     Active Substance: DOXORUBICIN HYDROCHLORIDE
     Indication: DIFFUSE LARGE B-CELL LYMPHOMA
     Route: 065
     Dates: start: 201512, end: 201604
  18. PREDNISOLONE. [Concomitant]
     Active Substance: PREDNISOLONE
     Indication: DIFFUSE LARGE B-CELL LYMPHOMA
     Route: 065
     Dates: start: 201512, end: 201604
  19. RITUXAN [Suspect]
     Active Substance: RITUXIMAB
     Indication: DIFFUSE LARGE B-CELL LYMPHOMA
     Route: 065
     Dates: start: 20200205
  20. ACYCLOVIR [ACICLOVIR] [Concomitant]
     Active Substance: ACYCLOVIR
     Indication: HERPES ZOSTER

REACTIONS (8)
  - Diffuse large B-cell lymphoma recurrent [Not Recovered/Not Resolved]
  - Malignant ascites [Not Recovered/Not Resolved]
  - Abdominal mass [Unknown]
  - Chronic kidney disease [Not Recovered/Not Resolved]
  - Pneumocystis jirovecii pneumonia [Recovered/Resolved]
  - Iron overload [Not Recovered/Not Resolved]
  - Systolic dysfunction [Recovering/Resolving]
  - Clostridium difficile infection [Recovered/Resolved]

NARRATIVE: CASE EVENT DATE: 201612
